FAERS Safety Report 20733505 (Version 2)
Quarter: 2022Q2

REPORT INFORMATION
  Report Type: Spontaneous
  Country: US (occurrence: US)
  Receive Date: 20220421
  Receipt Date: 20220509
  Transmission Date: 20220721
  Serious: No
  Sender: FDA-Public Use
  Company Number: US-BEH-2022144543

PATIENT
  Age: 59 Year
  Sex: Male

DRUGS (1)
  1. HAEGARDA [Suspect]
     Active Substance: HUMAN C1-ESTERASE INHIBITOR
     Dosage: 6300 INTERNATIONAL UNIT
     Route: 058
     Dates: start: 202012

REACTIONS (2)
  - Hypertension [Unknown]
  - Headache [Unknown]

NARRATIVE: CASE EVENT DATE: 20220401
